FAERS Safety Report 6039651-X (Version None)
Quarter: 2009Q1

REPORT INFORMATION
  Report Type: 
  Country: None (occurrence: None)
  Receive Date: 20090116
  Receipt Date: 20081217
  Transmission Date: 20090719
  Serious: No
  Sender: FDA-Public Use
  Company Number: US-BAYER-200841038NA

PATIENT

DRUGS (1)
  1. AVELOX [Suspect]
     Indication: DRUG USE FOR UNKNOWN INDICATION
     Route: 042
     Dates: start: 20081216

REACTIONS (4)
  - INFUSION SITE ERYTHEMA [None]
  - INFUSION SITE PRURITUS [None]
  - INJECTION SITE IRRITATION [None]
  - SKIN IRRITATION [None]
